FAERS Safety Report 10911855 (Version 1)
Quarter: 2015Q1

REPORT INFORMATION
  Report Type: Spontaneous
  Country: CH (occurrence: None)
  Receive Date: 20150309
  Receipt Date: 20150309
  Transmission Date: 20150721
  Serious: Yes (Life-Threatening, Hospitalization)
  Sender: FDA-Public Use
  Company Number: 2015030008

PATIENT
  Age: 46 Year
  Sex: Female

DRUGS (12)
  1. TOREM [Suspect]
     Active Substance: TORSEMIDE
     Indication: OEDEMA PERIPHERAL
     Route: 048
     Dates: start: 20150217
  2. KALIUM HAUSMANN EFFERVETTES (POTASSIUM CITRATE) [Concomitant]
  3. MAGNESIOCARD (MAGNESSIUM ASPARTATE HYDROCHLORIDE) [Concomitant]
  4. CATAPRESAN [Suspect]
     Active Substance: CLONIDINE
     Indication: PROPHYLAXIS
     Dosage: 600 MCG (150 MCG, 4 IN 1 D), ORAL
     Route: 048
     Dates: start: 20150217
  5. POTASSIUM [Concomitant]
     Active Substance: POTASSIUM
  6. DAFALGAN (PARACETAMOL) [Concomitant]
  7. PRIMPERAN [Suspect]
     Active Substance: METOCLOPRAMIDE HYDROCHLORIDE
     Indication: NAUSEA
     Dosage: INTAKE AT 11 AM: 10 AM ORAL (10 MG, 1 IN 1 D) , ORAL
     Route: 048
     Dates: start: 20150218
  8. KONAKION (PHYTOMENADIONE) [Concomitant]
  9. SERESTA (OXAZEPAM) [Concomitant]
     Active Substance: OXAZEPAM
  10. METHADONE [Suspect]
     Active Substance: METHADONE HYDROCHLORIDE
     Indication: DRUG DEPENDENCE
     Route: 048
     Dates: start: 2006
  11. CATAPRESAN [Suspect]
     Active Substance: CLONIDINE
     Indication: ALCOHOL WITHDRAWAL SYNDROME
     Dosage: 600 MCG (150 MCG, 4 IN 1 D), ORAL
     Route: 048
     Dates: start: 20150217
  12. CALCIMAGON  (CALCIUM CARBONATE) [Concomitant]

REACTIONS (14)
  - Pneumonia aspiration [None]
  - Pulmonary embolism [None]
  - Ventricular extrasystoles [None]
  - Pulmonary congestion [None]
  - Pulmonary arterial hypertension [None]
  - Inferior vena cava dilatation [None]
  - Emphysema [None]
  - Tachycardia [None]
  - Electrocardiogram QT prolonged [None]
  - Torsade de pointes [None]
  - Supraventricular extrasystoles [None]
  - Dilatation atrial [None]
  - Syncope [None]
  - Cyanosis [None]

NARRATIVE: CASE EVENT DATE: 20150218
